FAERS Safety Report 17487728 (Version 2)
Quarter: 2020Q1

REPORT INFORMATION
  Report Type: Spontaneous
  Country: FR (occurrence: FR)
  Receive Date: 20200303
  Receipt Date: 20200311
  Transmission Date: 20200409
  Serious: Yes (Death, Hospitalization)
  Sender: FDA-Public Use
  Company Number: FR-PFIZER INC-2020090554

PATIENT
  Age: 83 Year
  Sex: Male

DRUGS (8)
  1. LEVETIRACETAM. [Concomitant]
     Active Substance: LEVETIRACETAM
     Indication: DYSKINESIA
     Dosage: 1000 MG, 1X/DAY
     Route: 048
     Dates: start: 20190918
  2. AMIODARONE [Concomitant]
     Active Substance: AMIODARONE
     Dosage: 200 MG, 1X/DAY
     Route: 048
  3. MEDROL [Suspect]
     Active Substance: METHYLPREDNISOLONE
     Indication: ENCEPHALITIS AUTOIMMUNE
     Dosage: 55 MG, 1X/DAY
     Route: 048
     Dates: start: 20190920, end: 20191025
  4. POTASSIUM GLUCONATE H2 PHARMA [Concomitant]
     Dosage: 2 DF, 2X/DAY (2 TABLESPOONS, 2X/DAY)
     Route: 048
     Dates: start: 20190925, end: 20191025
  5. CACIT VITAMINE D3 [Concomitant]
     Active Substance: CALCIUM CARBONATE\CHOLECALCIFEROL
     Dosage: 1 DF, 1X/DAY
     Route: 048
     Dates: start: 20191001, end: 20191025
  6. KEYTRUDA [Suspect]
     Active Substance: PEMBROLIZUMAB
     Indication: LUNG ADENOCARCINOMA
     Dosage: 20 MG, EVERY 3 WEEKS
     Route: 042
     Dates: start: 20190416, end: 20190911
  7. PHOSPHONEUROS [Concomitant]
     Active Substance: CALCIUM PHOSPHATE, DIBASIC, ANHYDROUS\MAGNESIUM GLYCEROPHOSPHATE\PHOSPHORIC ACID\SODIUM PHOSPHATE, DIBASIC
     Dosage: 150 GTT, 1X/DAY
     Route: 048
     Dates: start: 20190925
  8. LANSOPRAZOLE. [Concomitant]
     Active Substance: LANSOPRAZOLE
     Indication: GASTROOESOPHAGEAL REFLUX DISEASE
     Dosage: 15 MG, 1X/DAY
     Route: 048

REACTIONS (1)
  - Herpes zoster [Fatal]

NARRATIVE: CASE EVENT DATE: 20191021
